FAERS Safety Report 4590394-9 (Version None)
Quarter: 2005Q1

REPORT INFORMATION
  Report Type: 
  Country: None (occurrence: None)
  Receive Date: 20050224
  Receipt Date: 20050217
  Transmission Date: 20050727
  Serious: Yes (Hospitalization)
  Sender: FDA-Public Use
  Company Number: FR-MERCK-0502FRA00062

PATIENT
  Age: 72 Year
  Sex: Male

DRUGS (2)
  1. VIOXX [Suspect]
     Indication: ARTHRALGIA
     Route: 048
     Dates: start: 20040901
  2. HYDROCHLOROTHIAZIDE AND LISINOPRIL [Suspect]
     Indication: HYPERTENSION
     Route: 048

REACTIONS (9)
  - CAROTID ARTERY STENOSIS [None]
  - CEREBRAL ISCHAEMIA [None]
  - DIFFICULTY IN WALKING [None]
  - DYSARTHRIA [None]
  - FACIAL PALSY [None]
  - MALAISE [None]
  - MOTOR DYSFUNCTION [None]
  - TONGUE PARALYSIS [None]
  - ULTRASOUND DOPPLER ABNORMAL [None]
